FAERS Safety Report 8469663-8 (Version None)
Quarter: 2012Q2

REPORT INFORMATION
  Report Type: 
  Country: None (occurrence: None)
  Receive Date: 20120626
  Receipt Date: 20120618
  Transmission Date: 20120825
  Serious: Yes (Death, Life-Threatening)
  Sender: FDA-Public Use
  Company Number: JP-AMGEN-JPNCT2012011126

PATIENT
  Age: 49 Year
  Sex: Female
  Weight: 56 kg

DRUGS (14)
  1. ISOVORIN [Suspect]
     Indication: COLORECTAL CANCER
     Dosage: UNK
     Route: 041
     Dates: start: 20111115, end: 20111215
  2. MAGNESIUM SULFATE [Concomitant]
     Dosage: UNK
     Route: 042
  3. FLUOROURACIL [Suspect]
     Indication: COLORECTAL CANCER
     Dosage: UNK
     Route: 042
     Dates: start: 20111115, end: 20111215
  4. OXALIPLATIN [Suspect]
     Indication: COLORECTAL CANCER
     Route: 041
     Dates: start: 20111115, end: 20111215
  5. MAGLAX [Concomitant]
     Dosage: UNK
     Route: 048
  6. CLARITHROMYCIN [Concomitant]
     Dosage: UNK
     Route: 048
  7. EMEND [Concomitant]
     Dosage: UNK
     Route: 048
  8. MINOCYCLINE HYDROCHLORIDE [Concomitant]
     Dosage: UNK
     Route: 048
  9. ALOXI [Concomitant]
     Dosage: UNK
     Route: 042
  10. FAMOGAST [Concomitant]
     Dosage: UNK
     Route: 048
  11. CELECOXIB [Concomitant]
     Dosage: UNK
     Route: 048
  12. DECADRON [Concomitant]
     Dosage: UNK
     Route: 065
  13. PANITUMUMAB [Suspect]
     Indication: COLORECTAL CANCER
     Dosage: 339 MG, Q2WK
     Route: 041
     Dates: start: 20111115, end: 20111213
  14. CALCIUM CARBONATE [Concomitant]
     Dosage: UNK
     Route: 042

REACTIONS (1)
  - INTERSTITIAL LUNG DISEASE [None]
